FAERS Safety Report 4725252-X (Version None)
Quarter: 2005Q3

REPORT INFORMATION
  Report Type: 
  Country: None (occurrence: None)
  Receive Date: 20050725
  Receipt Date: 20050711
  Transmission Date: 20060218
  Serious: Yes (Disabling, Other)
  Sender: FDA-Public Use
  Company Number: 2005103347

PATIENT
  Sex: Female

DRUGS (1)
  1. XANAX [Suspect]
     Indication: PANIC DISORDER WITH AGORAPHOBIA
     Dosage: 6 MG (1 MG)  MORE THAN 15 YEARS

REACTIONS (5)
  - DRUG HYPERSENSITIVITY [None]
  - ILL-DEFINED DISORDER [None]
  - ROAD TRAFFIC ACCIDENT [None]
  - RUPTURED CEREBRAL ANEURYSM [None]
  - THERAPEUTIC RESPONSE UNEXPECTED WITH DRUG SUBSTITUTION [None]
